FAERS Safety Report 12942752 (Version 1)
Quarter: 2016Q4

REPORT INFORMATION
  Report Type: Spontaneous
  Country: US (occurrence: US)
  Receive Date: 20161114
  Receipt Date: 20161114
  Transmission Date: 20170207
  Serious: Yes (Disabling, Other)
  Sender: FDA-Public Use
  Company Number: US-ROCHE-1852232

PATIENT
  Sex: Male
  Weight: 77.18 kg

DRUGS (27)
  1. LUTEIN [Concomitant]
     Active Substance: LUTEIN
  2. CLONAZEPAM. [Concomitant]
     Active Substance: CLONAZEPAM
     Route: 065
  3. NICOTINAMIDE [Concomitant]
     Active Substance: NIACINAMIDE
  4. METFORMIN [Concomitant]
     Active Substance: METFORMIN HYDROCHLORIDE
     Route: 065
  5. VITAMIN B12 [Concomitant]
     Active Substance: CYANOCOBALAMIN
  6. CHROMIUM PICOLINATE [Concomitant]
     Active Substance: CHROMIUM PICOLINATE
  7. BILBERRY [Concomitant]
     Active Substance: BILBERRY
  8. VACCINIUM MYRTILLUS [Concomitant]
  9. SELENIUM [Concomitant]
     Active Substance: SELENIUM
  10. BLINK (UNK INGREDIENTS) [Concomitant]
  11. ATORVASTATIN [Concomitant]
     Active Substance: ATORVASTATIN
  12. ASPIRIN. [Concomitant]
     Active Substance: ASPIRIN
     Dosage: LOW DOSE
     Route: 065
  13. XANTOFYL [Concomitant]
  14. EYLEA [Suspect]
     Active Substance: AFLIBERCEPT
     Dosage: RIGHT EYE
     Route: 031
  15. TRAMADOL. [Concomitant]
     Active Substance: TRAMADOL
  16. FISH OIL [Concomitant]
     Active Substance: FISH OIL
  17. EYLEA [Suspect]
     Active Substance: AFLIBERCEPT
     Dosage: BOTH EYES
     Route: 031
     Dates: start: 201605, end: 201606
  18. METHYLSULFONYLMETHANE SULFUR [Concomitant]
  19. ALEVE [Concomitant]
     Active Substance: NAPROXEN SODIUM
  20. TOCOPHEROL [Concomitant]
     Active Substance: TOCOPHEROL
  21. AVASTIN [Suspect]
     Active Substance: BEVACIZUMAB
     Indication: PRODUCT USED FOR UNKNOWN INDICATION
     Route: 065
  22. EYLEA [Suspect]
     Active Substance: AFLIBERCEPT
     Indication: NEOVASCULAR AGE-RELATED MACULAR DEGENERATION
     Route: 031
     Dates: start: 201405
  23. BETA CAROTENE [Concomitant]
  24. BAYER ASA [Concomitant]
  25. EYLEA [Suspect]
     Active Substance: AFLIBERCEPT
     Dosage: LEFT EYE, 2 INJECTIONS
     Route: 031
     Dates: start: 201606, end: 201606
  26. AMLODIPINE BESILATE/BENAZEPRIL HYDROCHLORIDE [Concomitant]
  27. ASCORBIC ACID. [Concomitant]
     Active Substance: ASCORBIC ACID

REACTIONS (3)
  - Eye haemorrhage [Not Recovered/Not Resolved]
  - Visual acuity reduced [Not Recovered/Not Resolved]
  - Drug ineffective [Unknown]
